FAERS Safety Report 9991145 (Version 1)
Quarter: 2014Q1

REPORT INFORMATION
  Report Type: Report from Study
  Country: US (occurrence: US)
  Receive Date: 20140310
  Receipt Date: 20140310
  Transmission Date: 20141002
  Serious: No
  Sender: FDA-Public Use
  Company Number: US-ABBVIE-13P-163-1135297-00

PATIENT
  Age: 62 Year
  Sex: Male

DRUGS (6)
  1. HUMIRA [Suspect]
     Indication: CROHN^S DISEASE
     Dates: start: 20130507
  2. FLONASE [Suspect]
     Indication: SINUS CONGESTION
  3. FLONASE [Suspect]
     Indication: SINUSITIS
  4. PROMETHAZINE [Concomitant]
     Indication: GASTRIC DISORDER
  5. FENTANYL [Concomitant]
     Indication: BACK PAIN
     Route: 062
  6. OXYCODONE [Concomitant]
     Indication: BACK PAIN

REACTIONS (4)
  - Drug ineffective [Not Recovered/Not Resolved]
  - Sinus congestion [Not Recovered/Not Resolved]
  - Paranasal sinus hypersecretion [Not Recovered/Not Resolved]
  - Sinusitis [Not Recovered/Not Resolved]
